FAERS Safety Report 9080196 (Version 1)
Quarter: 2013Q1

REPORT INFORMATION
  Report Type: Report from Study
  Country: US (occurrence: US)
  Receive Date: 20130130
  Receipt Date: 20130130
  Transmission Date: 20140127
  Serious: No
  Sender: FDA-Public Use
  Company Number: US-ABBOTT-12P-163-0970452-00

PATIENT
  Sex: Female
  Weight: 90.8 kg

DRUGS (16)
  1. HUMIRA 40 MG/0.8 ML PEN [Suspect]
     Indication: ANKYLOSING SPONDYLITIS
  2. HUMIRA 40 MG/0.8 ML PEN [Suspect]
  3. LEVOTHYROXINE [Concomitant]
     Indication: HYPOTHYROIDISM
  4. CYMBALTA [Concomitant]
     Indication: DEPRESSION
  5. CYMBALTA [Concomitant]
     Indication: FIBROMYALGIA
  6. METOPROLOL [Concomitant]
     Indication: HYPERTENSION
  7. AMLODIPINE [Concomitant]
     Indication: HYPERTENSION
  8. ESTRADIAL [Concomitant]
     Indication: HOT FLUSH
  9. ALDACTONE [Concomitant]
     Indication: FLUID RETENTION
  10. ZANAFLEX [Concomitant]
     Indication: MUSCLE SPASMS
  11. ALPRAZOLAM [Concomitant]
     Indication: SLEEP DISORDER THERAPY
  12. ALPRAZOLAM [Concomitant]
     Indication: FIBROMYALGIA
  13. KLONOPIN [Concomitant]
     Indication: INSOMNIA
  14. AMBIEN [Concomitant]
     Indication: INSOMNIA
  15. ALBUTEROL [Concomitant]
     Indication: ASTHMA
  16. ALBUTEROL [Concomitant]
     Indication: BRONCHITIS CHRONIC

REACTIONS (5)
  - Hypertension [Not Recovered/Not Resolved]
  - Injection site pain [Not Recovered/Not Resolved]
  - Pain [Not Recovered/Not Resolved]
  - Pain [Not Recovered/Not Resolved]
  - Pain in extremity [Not Recovered/Not Resolved]
